FAERS Safety Report 8513051-2 (Version None)
Quarter: 2012Q3

REPORT INFORMATION
  Report Type: 
  Country: None (occurrence: None)
  Receive Date: 20120716
  Receipt Date: 20120424
  Transmission Date: 20120928
  Serious: Yes (Other)
  Sender: FDA-Public Use
  Company Number: HU-BAXTER-2012BAX004368

PATIENT
  Age: 60 Year
  Sex: Female
  Weight: 67 kg

DRUGS (5)
  1. EXTRANEAL [Suspect]
     Route: 033
     Dates: start: 20050506
  2. IRON [Concomitant]
     Route: 065
  3. DIANEAL PD-1 W/ DEXTROSE 1.5% IN PLASTIC CONTAINER [Suspect]
     Route: 033
     Dates: start: 20050506
  4. DIANEAL PD1 GLUCOSE 2,27% PERITONEALIS DIALIZALO OLDAT [Suspect]
     Route: 033
     Dates: start: 20050506
  5. INSULIN [Concomitant]
     Route: 065

REACTIONS (1)
  - ARRHYTHMIA [None]
